FAERS Safety Report 6278736-X (Version None)
Quarter: 2009Q3

REPORT INFORMATION
  Report Type: 
  Country: None (occurrence: None)
  Receive Date: 20090721
  Receipt Date: 20090710
  Transmission Date: 20100115
  Serious: Yes (Hospitalization, Disabling)
  Sender: FDA-Public Use
  Company Number: 2008AL009933

PATIENT
  Age: 80 Year
  Sex: Female

DRUGS (7)
  1. DIGOXIN [Suspect]
     Indication: ATRIAL FIBRILLATION
     Dosage: 0.125MG, QOD, PO; 0.25MG, DAILY, PO
     Route: 048
  2. TOPROL-XL [Concomitant]
  3. HYDROCHLOROTHIAZIDE [Concomitant]
  4. LISINOPRIL [Concomitant]
  5. NOLVADEX [Concomitant]
  6. CELEBREX [Concomitant]
  7. ASPIRIN [Concomitant]

REACTIONS (13)
  - ANHEDONIA [None]
  - ANXIETY [None]
  - AZOTAEMIA [None]
  - BRADYCARDIA [None]
  - CARDIOACTIVE DRUG LEVEL INCREASED [None]
  - CHEST PAIN [None]
  - DEHYDRATION [None]
  - DYSPNOEA [None]
  - HEADACHE [None]
  - LUNG INFILTRATION [None]
  - MULTIPLE INJURIES [None]
  - PAIN [None]
  - WEIGHT DECREASED [None]
